FAERS Safety Report 15526266 (Version 1)
Quarter: 2018Q4

REPORT INFORMATION
  Report Type: Spontaneous
  Country: FR (occurrence: FR)
  Receive Date: 20181018
  Receipt Date: 20181018
  Transmission Date: 20190205
  Serious: Yes (Hospitalization)
  Sender: FDA-Public Use
  Company Number: FR-PROVELL PHARMACEUTICALS-2056338

PATIENT
  Age: 79 Year
  Sex: Female

DRUGS (10)
  1. BISOPROLOL [Concomitant]
     Active Substance: BISOPROLOL
  2. FUROSEMIDE. [Concomitant]
     Active Substance: FUROSEMIDE
  3. PRADAXA [Concomitant]
     Active Substance: DABIGATRAN ETEXILATE MESYLATE
  4. EUTHYROX [Suspect]
     Active Substance: LEVOTHYROXINE SODIUM
     Indication: PRODUCT USED FOR UNKNOWN INDICATION
  5. RAMIPRIL. [Concomitant]
     Active Substance: RAMIPRIL
  6. PARACETAMOL [Concomitant]
     Active Substance: ACETAMINOPHEN
  7. ALPRAZOLAM. [Concomitant]
     Active Substance: ALPRAZOLAM
  8. FLECAINE [Concomitant]
     Active Substance: FLECAINIDE
  9. INIPOMP [Concomitant]
     Active Substance: PANTOPRAZOLE SODIUM
  10. PAROXETINE. [Concomitant]
     Active Substance: PAROXETINE

REACTIONS (7)
  - Fatigue [None]
  - Blood thyroid stimulating hormone [Recovering/Resolving]
  - Cardiac disorder [None]
  - Vertigo [Not Recovered/Not Resolved]
  - Nausea [None]
  - Blood pressure abnormal [None]
  - Arthropathy [None]

NARRATIVE: CASE EVENT DATE: 2017
